FAERS Safety Report 7339772-5 (Version None)
Quarter: 2011Q1

REPORT INFORMATION
  Report Type: 
  Country: None (occurrence: None)
  Receive Date: 20110303
  Receipt Date: 20110303
  Transmission Date: 20110831
  Serious: No
  Sender: FDA-Public Use
  Company Number: None

PATIENT
  Age: 29 Year
  Sex: Female
  Weight: 74.8435 kg

DRUGS (1)
  1. SUMATRIPTAN 100MG TAB SUN PHARMACEUTICAL IND. LTD. [Suspect]
     Indication: MIGRAINE
     Dosage: 100MG ONSET OF MIGRAINE PO
     Route: 048
     Dates: start: 20110228, end: 20110228

REACTIONS (7)
  - DIARRHOEA [None]
  - PRODUCT SUBSTITUTION ISSUE [None]
  - NAUSEA [None]
  - DIZZINESS [None]
  - ABDOMINAL PAIN UPPER [None]
  - FATIGUE [None]
  - REACTION TO DRUG EXCIPIENTS [None]
